FAERS Safety Report 9228220 (Version 2)
Quarter: 2013Q2

REPORT INFORMATION
  Report Type: Spontaneous
  Country: DE (occurrence: DE)
  Receive Date: 20130412
  Receipt Date: 20130507
  Transmission Date: 20140414
  Serious: Yes (Death)
  Sender: FDA-Public Use
  Company Number: DE-ROCHE-1209803

PATIENT
  Age: 58 Year
  Sex: Male

DRUGS (5)
  1. ACTILYSE [Suspect]
     Indication: PULMONARY EMBOLISM
     Dosage: 50 MG BOLUS, FOLLOWED BY 25 MG BOLUS (3.5 HOURS LATER) AND A 50 MG/H INFUSION THEREAFTER
     Route: 065
  2. HEPARIN [Concomitant]
     Indication: PULMONARY EMBOLISM
     Dosage: 10000 U
     Route: 065
  3. EPINEPHRINE [Concomitant]
     Indication: HAEMODYNAMIC INSTABILITY
     Dosage: 1 MCG/KG/MIN
     Route: 065
  4. NOREPINEPHRINE [Concomitant]
     Indication: HAEMODYNAMIC INSTABILITY
     Dosage: 0.5 MCG/KG/MIN
     Route: 065
  5. NITRIC OXIDE [Concomitant]
     Indication: INCREASED VENTRICULAR AFTERLOAD
     Route: 065

REACTIONS (2)
  - Right ventricular failure [Fatal]
  - Drug ineffective [Fatal]
